FAERS Safety Report 16805966 (Version 1)
Quarter: 2019Q4

REPORT INFORMATION
  Report Type: Spontaneous
  Country: US (occurrence: US)
  Receive Date: 20190913
  Receipt Date: 20190913
  Transmission Date: 20200122
  Serious: Yes (Hospitalization)
  Sender: FDA-Public Use
  Company Number: None

PATIENT
  Age: 60 Year
  Sex: Male
  Weight: 54 kg

DRUGS (24)
  1. XOLAIR [Suspect]
     Active Substance: OMALIZUMAB
     Indication: URTICARIA
     Dosage: ?          QUANTITY:1 INJECTION(S);OTHER FREQUENCY:ONCE EVERY 4 WEEKS;?
  2. XOLAIR [Suspect]
     Active Substance: OMALIZUMAB
     Indication: ANAPHYLACTIC REACTION
     Dosage: ?          QUANTITY:1 INJECTION(S);OTHER FREQUENCY:ONCE EVERY 4 WEEKS;?
  3. PROGESTERONE. [Concomitant]
     Active Substance: PROGESTERONE
  4. SPIRONOLACTONE. [Concomitant]
     Active Substance: SPIRONOLACTONE
  5. SPIRIVA [Concomitant]
     Active Substance: TIOTROPIUM BROMIDE MONOHYDRATE
  6. TIZANIDINE. [Concomitant]
     Active Substance: TIZANIDINE
  7. HYDROCODONE [Concomitant]
     Active Substance: HYDROCODONE
  8. SIMVASTATIN. [Concomitant]
     Active Substance: SIMVASTATIN
  9. METFORMIN [Concomitant]
     Active Substance: METFORMIN HYDROCHLORIDE
  10. PREDNISONE. [Concomitant]
     Active Substance: PREDNISONE
  11. ZOLPIDEM [Concomitant]
     Active Substance: ZOLPIDEM TARTRATE
  12. CEPHALEXIN. [Concomitant]
     Active Substance: CEPHALEXIN
  13. LIDOCAINE SPRAY AND GEL [Concomitant]
  14. TESTOSTERONE. [Concomitant]
     Active Substance: TESTOSTERONE
  15. HYDROXYZINE [Concomitant]
     Active Substance: HYDROXYZINE HYDROCHLORIDE
  16. ALLEGRA [Concomitant]
     Active Substance: FEXOFENADINE HYDROCHLORIDE
  17. GLIPIZIDE. [Concomitant]
     Active Substance: GLIPIZIDE
  18. ESTRAGEN [Concomitant]
  19. TRAZODONE [Concomitant]
     Active Substance: TRAZODONE HYDROCHLORIDE
  20. LISINOPRIL. [Concomitant]
     Active Substance: LISINOPRIL
  21. CITALOPRAM [Concomitant]
     Active Substance: CITALOPRAM HYDROBROMIDE
  22. VALACYCLOVIR [Concomitant]
     Active Substance: VALACYCLOVIR HYDROCHLORIDE
  23. MULTIVITAMIN [Concomitant]
     Active Substance: VITAMINS
  24. FLUTICASONE. [Concomitant]
     Active Substance: FLUTICASONE

REACTIONS (9)
  - Cardiac failure [None]
  - Skin weeping [None]
  - Acute kidney injury [None]
  - Pyrexia [None]
  - Skin exfoliation [None]
  - Fluid retention [None]
  - Pulmonary oedema [None]
  - Erythema [None]
  - Anaphylactic reaction [None]

NARRATIVE: CASE EVENT DATE: 20190808
